FAERS Safety Report 7474914-2 (Version None)
Quarter: 2011Q2

REPORT INFORMATION
  Report Type: 
  Country: None (occurrence: None)
  Receive Date: 20110512
  Receipt Date: 20091016
  Transmission Date: 20111010
  Serious: Yes (Death, Other)
  Sender: FDA-Public Use
  Company Number: US-BAYER-200936439NA

PATIENT
  Age: 73 Year
  Sex: Male
  Weight: 106.12 kg

DRUGS (41)
  1. TRASYLOL [Suspect]
     Dosage: 2 MILLION KIU PUMP PRIME
     Route: 042
  2. TRASYLOL [Suspect]
     Dosage: 100 ML/HR INFUSION
     Route: 042
     Dates: end: 20041209
  3. NEURONTIN [Concomitant]
     Dosage: 300 MG, TID
     Route: 048
  4. BUMEX [Concomitant]
     Dosage: 1 MG, BID
     Route: 048
  5. HYTRIN [Concomitant]
     Dosage: 5 MG, TID
     Route: 048
  6. EFFEXOR [Concomitant]
     Dosage: 75 MG, HS
     Route: 048
  7. QUININE SULFATE [Concomitant]
     Dosage: UNK UNK, HS
     Route: 048
  8. DOPAMINE HCL [Concomitant]
     Dosage: 400 MG/250 ML
     Route: 042
     Dates: start: 20041209
  9. SYNTHROID [Concomitant]
     Dosage: 0.2 MG, QD
     Route: 048
  10. HYDRALAZINE HCL [Concomitant]
     Dosage: 25 MG, TID
     Route: 048
  11. PREVACID [Concomitant]
     Dosage: 30 MG, QD
     Route: 048
  12. FIBERCON [Concomitant]
     Dosage: PRN
     Route: 048
  13. PLATELETS [Concomitant]
     Dosage: 1 U, UNK
     Route: 042
     Dates: start: 20041209, end: 20041209
  14. SEREVENT [Concomitant]
     Dosage: 3 PRN INHALER
     Route: 055
  15. ISORDIL [Concomitant]
     Dosage: 40 MG, BID
     Route: 048
  16. COMBIVENT [Concomitant]
     Dosage: 3 PRN INHALER
     Route: 055
  17. EDEX [Concomitant]
     Dosage: PRN
  18. PROCRIT [Concomitant]
     Dosage: Q WEEK
  19. PHENYLEPHRINE [PHENYLEPHRINE HYDROCHLORIDE] [Concomitant]
     Dosage: 20 MG/250 ML
     Route: 042
     Dates: start: 20041209
  20. CISATRACURIUM BESYLATE [Concomitant]
     Dosage: 70 MG, UNK
     Route: 042
     Dates: start: 20041209
  21. CONTRAST MEDIA [Concomitant]
     Indication: CATHETERISATION CARDIAC
     Dosage: UNK
     Dates: start: 20041206
  22. SINGULAIR [Concomitant]
     Dosage: 10 MG, HS
     Route: 048
  23. NITROGLYCERIN [Concomitant]
     Dosage: 50 MG/250 ML
     Route: 042
     Dates: start: 20041204
  24. TESTOSTERONE UNDECANOATE [Concomitant]
     Dosage: Q3 WEEK
  25. RED BLOOD CELLS, CONCENTRATED [Concomitant]
     Dosage: 3 U, UNK
     Route: 042
     Dates: start: 20041209, end: 20041209
  26. HYDROCHLOROTHIAZIDE [Concomitant]
  27. INSULIN [INSULIN] [Concomitant]
     Dosage: 250 UNITS/250 ML
     Route: 042
     Dates: start: 20041209
  28. AZMACORT [Concomitant]
     Dosage: 3 PRN INHALER
     Route: 055
  29. IRON [IRON] [Concomitant]
     Dosage: 325 MG, QID
     Route: 048
  30. NITROGLYCERIN [Concomitant]
     Dosage: PRN
  31. SODIUM NITROPRUSSIDE [Concomitant]
     Dosage: 50 MG/250 ML
     Route: 042
     Dates: start: 20041209
  32. TRASYLOL [Suspect]
     Dosage: 200 ML LOADING DOSE
     Route: 042
  33. INSULIN [INSULIN] [Concomitant]
     Dosage: SLIDING SCALE PRN
     Route: 058
  34. ZAROXOLYN [Concomitant]
     Dosage: 2.5 MG, QD
     Route: 048
  35. POTASSIUM [POTASSIUM] [Concomitant]
     Dosage: 8 MEQ 2 QID
     Route: 048
  36. ACETYLSALICYLIC ACID SRT [Concomitant]
     Route: 048
  37. IMODIUM [Concomitant]
     Dosage: PRN
     Route: 048
  38. MIDAZOLAM [Concomitant]
     Dosage: 2 MG, UNK
     Route: 042
     Dates: start: 20041209
  39. TRASYLOL [Suspect]
     Indication: CORONARY ARTERY BYPASS
     Dosage: 1 ML INITIAL DOSE
     Route: 042
     Dates: start: 20041209
  40. FENTANYL [Concomitant]
     Dosage: 25 MG, UNK
     Route: 042
     Dates: start: 20041209
  41. CONTRAST MEDIA [Concomitant]
     Indication: CARDIAC STRESS TEST
     Dosage: UNK
     Dates: start: 20061221

REACTIONS (7)
  - DEATH [None]
  - RENAL INJURY [None]
  - UNEVALUABLE EVENT [None]
  - RENAL FAILURE [None]
  - INJURY [None]
  - RENAL FAILURE ACUTE [None]
  - PAIN [None]
